FAERS Safety Report 23908451 (Version 1)
Quarter: 2024Q2

REPORT INFORMATION
  Report Type: Report from Study
  Country: US (occurrence: None)
  Receive Date: 20240528
  Receipt Date: 20240528
  Transmission Date: 20240716
  Serious: Yes (Other)
  Sender: FDA-Public Use
  Company Number: 2024A118276

PATIENT
  Sex: Female

DRUGS (1)
  1. TRUQAP [Suspect]
     Active Substance: CAPIVASERTIB
     Indication: Breast cancer female
     Route: 048
     Dates: start: 20240315

REACTIONS (9)
  - Bladder spasm [Unknown]
  - Micturition urgency [Unknown]
  - Dysuria [Unknown]
  - Sleep disorder due to a general medical condition [Unknown]
  - Urethral pain [Unknown]
  - Rash [Unknown]
  - Vomiting [Unknown]
  - Syncope [Unknown]
  - Product use issue [Unknown]
